FAERS Safety Report 5516337-9 (Version None)
Quarter: 2007Q4

REPORT INFORMATION
  Report Type: 
  Country: None (occurrence: None)
  Receive Date: 20071114
  Receipt Date: 20070131
  Transmission Date: 20080405
  Serious: No
  Sender: FDA-Public Use
  Company Number: A0637585A

PATIENT
  Age: 63 Year
  Sex: Female

DRUGS (1)
  1. COMMIT [Suspect]
     Dates: start: 20070129, end: 20070129

REACTIONS (5)
  - ANXIETY [None]
  - DYSPHONIA [None]
  - HEART RATE INCREASED [None]
  - MALAISE [None]
  - THROAT IRRITATION [None]
